APPROVED DRUG PRODUCT: ISOSULFAN BLUE
Active Ingredient: ISOSULFAN BLUE
Strength: 50MG/5ML (10MG/ML)
Dosage Form/Route: SOLUTION;SUBCUTANEOUS
Application: A216090 | Product #001 | TE Code: AP
Applicant: MSN LABORATORIES PRIVATE LTD
Approved: Sep 16, 2022 | RLD: No | RS: No | Type: RX